FAERS Safety Report 7110217-3 (Version None)
Quarter: 2010Q4

REPORT INFORMATION
  Report Type: 
  Country: None (occurrence: None)
  Receive Date: 20101118
  Receipt Date: 20101109
  Transmission Date: 20110411
  Serious: Yes (Hospitalization, Other)
  Sender: FDA-Public Use
  Company Number: TW-BAYER-201046235GPV

PATIENT
  Age: 75 Year
  Sex: Male
  Weight: 87 kg

DRUGS (18)
  1. SORAFENIB [Suspect]
     Indication: HEPATIC NEOPLASM MALIGNANT
     Dosage: TOTAL DAILY DOSE: 800 MG
     Route: 048
     Dates: start: 20100628, end: 20100718
  2. SORAFENIB [Suspect]
     Dosage: TOTAL DAILY DOSE: 800 MG
     Route: 048
     Dates: start: 20100719, end: 20100808
  3. SORAFENIB [Suspect]
     Route: 048
     Dates: start: 20100809, end: 20100829
  4. ABT-869 (LINIFANIB) (DRUG NOT GIVEN) [Suspect]
     Indication: HEPATIC NEOPLASM MALIGNANT
  5. COUGH MIXTURE [Concomitant]
     Indication: ATELECTASIS
     Dosage: TOTAL DAILY DOSE: 60 ML
     Dates: start: 20100428
  6. METFORMIN [Concomitant]
     Indication: DIABETES MELLITUS
     Dosage: TOTAL DAILY DOSE: 1000 MG
     Dates: start: 20100326
  7. SITAGLIPTIN [Concomitant]
     Indication: DIABETES MELLITUS
     Dates: start: 20091230
  8. ACETYLCYSTEINE [Concomitant]
     Indication: ATELECTASIS
     Dosage: TOTAL DAILY DOSE: 600 MG
     Dates: start: 20100312
  9. FENOTEROL [Concomitant]
     Indication: ATELECTASIS
     Dates: start: 20100302
  10. AMLODIPINE [Concomitant]
     Indication: HYPERTENSION
     Dates: start: 20100719
  11. GENTAMICIN [Concomitant]
     Indication: PALMAR-PLANTAR ERYTHRODYSAESTHESIA SYNDROME
     Dosage: TOTAL DAILY DOSE: 10 G
     Dates: start: 20100719
  12. BUPRENORPHINE [Concomitant]
     Indication: ABDOMINAL PAIN
     Dates: start: 20100726
  13. IMIPRAMINE HYDROCHLORIDE [Concomitant]
     Indication: URINARY INCONTINENCE
     Dates: start: 20100726
  14. DIMETICONE [Concomitant]
     Indication: ABDOMINAL DISTENSION
     Dosage: TOTAL DAILY DOSE: 240 MG
     Dates: start: 20100712
  15. FLUDIAZEPAM [Concomitant]
     Indication: ANXIETY
     Dosage: TOTAL DAILY DOSE: 0.75 MG
     Dates: start: 20100712
  16. PIRACETAM [Concomitant]
     Indication: MEMORY IMPAIRMENT
     Dates: start: 20100809
  17. MAGNESIUM OXIDE [Concomitant]
     Indication: CONSTIPATION
     Dosage: TOTAL DAILY DOSE: 1500 MG
     Dates: start: 20100823
  18. GLIBENCLAMIDE [Concomitant]
     Indication: DIABETES MELLITUS
     Dosage: TOTAL DAILY DOSE: 20 MG
     Dates: start: 20100823

REACTIONS (8)
  - ASTHENIA [None]
  - DIZZINESS [None]
  - FALL [None]
  - FATIGUE [None]
  - HEAD INJURY [None]
  - HYPONATRAEMIA [None]
  - HYPOPHAGIA [None]
  - SEPSIS [None]
